FAERS Safety Report 25513328 (Version 1)
Quarter: 2025Q3

REPORT INFORMATION
  Report Type: Other
  Country: US (occurrence: EU)
  Receive Date: 20250703
  Receipt Date: 20250703
  Transmission Date: 20251020
  Serious: Yes (Other)
  Sender: SAPTALIS PHARMACEUTICALS LLC
  Company Number: EU-Saptalis Pharmaceuticals LLC-2179892

PATIENT
  Age: 41 Year
  Sex: Female

DRUGS (1)
  1. FLUOXETINE HYDROCHLORIDE [Suspect]
     Active Substance: FLUOXETINE HYDROCHLORIDE
     Indication: Adjustment disorder

REACTIONS (1)
  - Colitis microscopic [Unknown]
